FAERS Safety Report 24904846 (Version 1)
Quarter: 2025Q1

REPORT INFORMATION
  Report Type: Report from Study
  Country: US (occurrence: US)
  Receive Date: 20250130
  Receipt Date: 20250130
  Transmission Date: 20250408
  Serious: Yes (Other)
  Sender: MYLAN
  Company Number: US-MYLANLABS-2025M1007041

PATIENT
  Age: 4 Year
  Sex: Male
  Weight: 15 kg

DRUGS (11)
  1. NEURONTIN [Suspect]
     Active Substance: GABAPENTIN
     Indication: Pain in extremity
     Route: 048
     Dates: start: 20230616, end: 20230703
  2. VINCRISTINE SULFATE [Suspect]
     Active Substance: VINCRISTINE SULFATE
     Indication: Leukaemia
     Dosage: 0.98 MILLIGRAM, QW (WEEKLY)
     Route: 042
     Dates: start: 20230527, end: 20230612
  3. VINCRISTINE SULFATE [Suspect]
     Active Substance: VINCRISTINE SULFATE
     Dosage: 0.98 MILLIGRAM, QW (WEEKLY)
     Route: 042
  4. MITOXANTRONE HYDROCHLORIDE [Suspect]
     Active Substance: MITOXANTRONE HYDROCHLORIDE
     Indication: Leukaemia
     Dosage: 6.4 MILLIGRAM, QD (DAILY)
     Route: 042
     Dates: start: 20230525, end: 20230526
  5. PEGASPARGASE [Suspect]
     Active Substance: PEGASPARGASE
     Indication: Leukaemia
     Route: 042
     Dates: start: 20230525, end: 20230525
  6. DEXAMETHASONE SODIUM PHOSPHATE [Suspect]
     Active Substance: DEXAMETHASONE SODIUM PHOSPHATE
     Indication: Leukaemia
     Dosage: 6.5 MILLIGRAM, BID (2X/DAY)
     Route: 042
     Dates: start: 20230525, end: 20230529
  7. DEXAMETHASONE SODIUM PHOSPHATE [Suspect]
     Active Substance: DEXAMETHASONE SODIUM PHOSPHATE
     Dosage: 6.5 MILLIGRAM, BID (2X/DAY)
     Route: 042
     Dates: start: 20230608
  8. MELATONIN [Suspect]
     Active Substance: MELATONIN
     Indication: Insomnia
     Dosage: 2 MILLIGRAM, QD (DAILY)
     Route: 048
     Dates: start: 20230616, end: 20230703
  9. BACTRIM [Suspect]
     Active Substance: SULFAMETHOXAZOLE\TRIMETHOPRIM
     Indication: Infection prophylaxis
     Route: 048
     Dates: start: 20230622, end: 20230703
  10. SERETIDE [Concomitant]
     Active Substance: FLUTICASONE PROPIONATE\SALMETEROL XINAFOATE
     Dosage: 125 MICROGRAM, BID (TWICE A DAY)
     Route: 065
     Dates: start: 20230623
  11. ACETAMINOPHEN [Concomitant]
     Active Substance: ACETAMINOPHEN
     Route: 048
     Dates: start: 20230623

REACTIONS (3)
  - Hepatic cytolysis [Recovered/Resolved]
  - Condition aggravated [Recovered/Resolved]
  - Off label use [Unknown]

NARRATIVE: CASE EVENT DATE: 20230614
